FAERS Safety Report 11273041 (Version 1)
Quarter: 2015Q3

REPORT INFORMATION
  Report Type: Spontaneous
  Country: JP (occurrence: JP)
  Receive Date: 20150715
  Receipt Date: 20150715
  Transmission Date: 20151125
  Serious: Yes (Other)
  Sender: FDA-Public Use
  Company Number: JP-SA-2015SA103074

PATIENT

DRUGS (2)
  1. HALCION [Concomitant]
     Active Substance: TRIAZOLAM
     Dosage: PER ORAL NOS
     Route: 065
  2. MYSLEE [Suspect]
     Active Substance: ZOLPIDEM TARTRATE
     Route: 048

REACTIONS (2)
  - Road traffic accident [Unknown]
  - Mental disorder [Unknown]
